FAERS Safety Report 5332600-9 (Version None)
Quarter: 2007Q2

REPORT INFORMATION
  Report Type: 
  Country: None (occurrence: None)
  Receive Date: 20070523
  Receipt Date: 20070522
  Transmission Date: 20071010
  Serious: Yes (Hospitalization, Disabling)
  Sender: FDA-Public Use
  Company Number: JP-SP-2007-00633

PATIENT
  Age: 78 Year
  Sex: Male

DRUGS (13)
  1. IMMUCYST [Suspect]
     Indication: BLADDER CANCER
     Route: 043
     Dates: start: 20060502, end: 20060623
  2. IMMUCYST [Suspect]
     Route: 043
     Dates: start: 20060502, end: 20060623
  3. TAMSULOSIN HCL [Concomitant]
     Route: 048
     Dates: start: 20060327, end: 20060623
  4. CAFCAPENE PIVOXIL HYDROCHLORIDE [Concomitant]
     Route: 048
     Dates: start: 20060507, end: 20060530
  5. LEVOFLOXACIN [Concomitant]
     Route: 048
     Dates: start: 20060623, end: 20060706
  6. CANDESARTAN CILEXETIL [Concomitant]
     Dosage: UNK
     Route: 048
     Dates: start: 20060502, end: 20060623
  7. ATORVASTATIN CALCIUM [Concomitant]
     Route: 048
     Dates: start: 20060502, end: 20060623
  8. NICORANDIL [Concomitant]
     Dosage: UNK
     Route: 048
     Dates: start: 20060502, end: 20060623
  9. PRONASE [Concomitant]
     Dosage: 54000IU/DAY
     Route: 048
     Dates: start: 20060502, end: 20060623
  10. SEVEN E.P. (DIGESTIVE ENZYME COMBINATION DRUGS) [Concomitant]
     Dosage: 3 CAPS/DAY
     Route: 048
     Dates: start: 20060502, end: 20060623
  11. L-METHYLCYSTEINE HYDROCHLORIDE [Concomitant]
     Route: 048
     Dates: start: 20060502, end: 20060623
  12. KETOTIFEN FUMARATE [Concomitant]
     Route: 048
     Dates: start: 20060502, end: 20060623
  13. SODIUM AZULENE SULFONATE-L-GLUTAMINE [Concomitant]
     Route: 048
     Dates: start: 20060502, end: 20060623

REACTIONS (3)
  - FALL [None]
  - PYREXIA [None]
  - PYURIA [None]
